FAERS Safety Report 8306135-5 (Version None)
Quarter: 2012Q2

REPORT INFORMATION
  Report Type: 
  Country: None (occurrence: None)
  Receive Date: 20120423
  Receipt Date: 20120410
  Transmission Date: 20120825
  Serious: Yes (Other)
  Sender: FDA-Public Use
  Company Number: DE-MYLANLABS-2012S1007442

PATIENT
  Sex: Female
  Weight: 73 kg

DRUGS (4)
  1. ORTHOMOL [Concomitant]
     Indication: PROPHYLAXIS OF NEURAL TUBE DEFECT
     Dosage: 0.5 [MG/D ]
     Route: 048
     Dates: start: 20110316, end: 20111013
  2. AZATHIOPRINE [Suspect]
     Indication: INFLAMMATORY BOWEL DISEASE
     Dosage: 150 [MG/D ]/ SINCE JUNE 2010. PROBABLY TAKEN UNTIL DELIVERY.
     Route: 048
     Dates: start: 20110316, end: 20111013
  3. ATARAX [Suspect]
     Indication: PRURITUS
     Dosage: 37.5 [MG/D ]/ PROBABLY TAKEN UNTIL DELIVERY. DOSAGE WAS ELEVATED FROM 25 TO 37.5 MG/D ON OCTOBER, 12
     Route: 048
     Dates: start: 20110927, end: 20111026
  4. PREDNISONE [Suspect]
     Indication: INFLAMMATORY BOWEL DISEASE
     Route: 048
     Dates: start: 20110415, end: 20111013

REACTIONS (4)
  - STILLBIRTH [None]
  - MATERNAL EXPOSURE DURING PREGNANCY [None]
  - CHOLESTASIS [None]
  - INFLUENZA LIKE ILLNESS [None]
